FAERS Safety Report 14416030 (Version 5)
Quarter: 2018Q3

REPORT INFORMATION
  Report Type: Report from Study
  Country: GB (occurrence: GB)
  Receive Date: 20180122
  Receipt Date: 20180830
  Transmission Date: 20181010
  Serious: Yes (Hospitalization)
  Sender: FDA-Public Use
  Company Number: GB-BRISTOL-MYERS SQUIBB COMPANY-BMS-2016-025792

PATIENT
  Sex: Female

DRUGS (1)
  1. ABATACEPT [Suspect]
     Active Substance: ABATACEPT
     Indication: RHEUMATOID ARTHRITIS
     Dosage: 125 MG, Q2WK
     Route: 058
     Dates: start: 20140714

REACTIONS (7)
  - Abscess [Unknown]
  - Pain [Unknown]
  - Off label use [Unknown]
  - Malaise [Unknown]
  - Memory impairment [Unknown]
  - Infection [Unknown]
  - Drug dose omission [Unknown]
